FAERS Safety Report 25286781 (Version 3)
Quarter: 2025Q2

REPORT INFORMATION
  Report Type: Spontaneous
  Country: US (occurrence: US)
  Receive Date: 20250509
  Receipt Date: 20250620
  Transmission Date: 20250717
  Serious: No
  Sender: ROCHE
  Company Number: US-ROCHE-10000279040

PATIENT
  Age: 55 Year
  Sex: Female

DRUGS (10)
  1. XOLAIR PFS [Suspect]
     Active Substance: OMALIZUMAB
     Indication: Dermatitis atopic
     Dosage: STRENGTH: 150MG/ML
     Route: 058
     Dates: start: 202412
  2. XOLAIR PFS [Suspect]
     Active Substance: OMALIZUMAB
     Indication: Chronic spontaneous urticaria
     Dosage: STRENGTH: 150MG/ML
     Route: 058
     Dates: start: 20250415
  3. METFORMIN [Concomitant]
     Active Substance: METFORMIN HYDROCHLORIDE
  4. LOSARTAN [Concomitant]
     Active Substance: LOSARTAN
  5. Synthroid 25 mcg tablet [Concomitant]
  6. HYDROXYZINE HYDROCHLORIDE [Concomitant]
     Active Substance: HYDROXYZINE HYDROCHLORIDE
  7. epinephrine 0.3 mg/0.3 mL injection, auto-injector [Concomitant]
  8. neffy 2 mg/spray (0.1 mL) nasal spray [Concomitant]
  9. fluticasone propionate 50 mcg/actuation nasal spray,suspension [Concomitant]
     Dosage: FLUTICASONE PROPIONATE 50 MCG/ACTUATION NASAL SPRAY,SUSPENSION
  10. azelastine 0.05% eye drops [Concomitant]

REACTIONS (3)
  - Musculoskeletal stiffness [Unknown]
  - Eye pruritus [Recovering/Resolving]
  - Lacrimation increased [Unknown]

NARRATIVE: CASE EVENT DATE: 20250405
